FAERS Safety Report 15940246 (Version 2)
Quarter: 2020Q4

REPORT INFORMATION
  Report Type: Report from Study
  Country: US (occurrence: US)
  Receive Date: 20190208
  Receipt Date: 20201027
  Transmission Date: 20210113
  Serious: No
  Sender: FDA-Public Use
  Company Number: US-ALEXION PHARMACEUTICALS INC.-A201901813

PATIENT
  Sex: Female

DRUGS (2)
  1. SOLIRIS [Suspect]
     Active Substance: ECULIZUMAB
     Indication: MYASTHENIA GRAVIS
     Dosage: 900 MG, QW
     Route: 042
  2. SOLIRIS [Suspect]
     Active Substance: ECULIZUMAB
     Dosage: UNK, UNK
     Route: 065

REACTIONS (9)
  - Somnolence [Unknown]
  - Headache [Recovered/Resolved]
  - Back pain [Unknown]
  - Musculoskeletal stiffness [Recovered/Resolved]
  - Chills [Recovered/Resolved]
  - Migraine [Unknown]
  - Photophobia [Recovered/Resolved]
  - Spinal fusion surgery [Unknown]
  - Pain in extremity [Unknown]

NARRATIVE: CASE EVENT DATE: 202010
